FAERS Safety Report 16079287 (Version 1)
Quarter: 2019Q1

REPORT INFORMATION
  Report Type: Spontaneous
  Country: DE (occurrence: DE)
  Receive Date: 20190315
  Receipt Date: 20190315
  Transmission Date: 20190418
  Serious: Yes (Hospitalization, Other)
  Sender: FDA-Public Use
  Company Number: DE-ASTRAZENECA-2019SE33630

PATIENT
  Age: 146 Day
  Sex: Female
  Weight: 6.6 kg

DRUGS (4)
  1. ESPUMISAN [Concomitant]
     Active Substance: DIMETHICONE
     Indication: PRODUCT USED FOR UNKNOWN INDICATION
     Dosage: 3-4 X PER DAY
     Route: 048
  2. SYNAGIS [Suspect]
     Active Substance: PALIVIZUMAB
     Indication: PREMATURE BABY
     Route: 030
     Dates: start: 20181009, end: 20190102
  3. CARUM CARVI [Concomitant]
     Indication: ABDOMINAL PAIN
     Route: 054
     Dates: start: 201810
  4. VIGANTOLETTEN [Concomitant]
     Active Substance: CHOLECALCIFEROL
     Indication: PROPHYLAXIS
     Route: 048
     Dates: start: 201809

REACTIONS (10)
  - Respiratory failure [Recovering/Resolving]
  - General physical health deterioration [Recovered/Resolved]
  - Tachycardia [Unknown]
  - Respiratory syncytial virus infection [Recovered/Resolved]
  - Lung infiltration [Recovering/Resolving]
  - Fluid intake reduced [Unknown]
  - Hypoventilation [Recovering/Resolving]
  - Superinfection bacterial [Unknown]
  - Pneumonia respiratory syncytial viral [Recovering/Resolving]
  - C-reactive protein increased [Unknown]

NARRATIVE: CASE EVENT DATE: 20190121
